FAERS Safety Report 23582527 (Version 3)
Quarter: 2024Q2

REPORT INFORMATION
  Report Type: Report from Study
  Country: TR (occurrence: TR)
  Receive Date: 20240229
  Receipt Date: 20240402
  Transmission Date: 20240716
  Serious: Yes (Hospitalization)
  Sender: FDA-Public Use
  Company Number: TR-ABBVIE-5658281

PATIENT
  Sex: Male
  Weight: 65 kg

DRUGS (5)
  1. CARBIDOPA\LEVODOPA [Suspect]
     Active Substance: CARBIDOPA\LEVODOPA
     Indication: Parkinson^s disease
     Dosage: MORNING DOSE (ML): 9.00 CONTINUOUS DOSE (ML): 6.30 EXTRA DOSE (ML): 1.50
     Route: 050
     Dates: start: 20231017
  2. CARBIDOPA\LEVODOPA [Suspect]
     Active Substance: CARBIDOPA\LEVODOPA
  3. LUSTRAL [Concomitant]
     Active Substance: SERTRALINE HYDROCHLORIDE
     Indication: Depression
     Dosage: 50 MILLIGRAM?START DATE TEXT: UNKNOWN?FORM STRENGTH: 50 MILLIGRAM
     Route: 048
  4. BENIDIPINE HYDROCHLORIDE [Concomitant]
     Active Substance: BENIDIPINE HYDROCHLORIDE
     Indication: Hypertension
     Dosage: FORM STRENGTH: 4 MILLIGRAM?START DATE TEXT: UNKNOWN?4 MILLIGRAM
     Route: 048
  5. DIOVAN [Concomitant]
     Active Substance: VALSARTAN
     Indication: Hypertension
     Dosage: 160 MILLIGRAM?START DATE TEXT: UNKNOWN?FORM STRENGTH: 160 MILLIGRAM
     Route: 048

REACTIONS (3)
  - C-reactive protein increased [Recovered/Resolved]
  - Bradykinesia [Recovered/Resolved]
  - Polyneuropathy [Not Recovered/Not Resolved]
